FAERS Safety Report 10246322 (Version 1)
Quarter: 2014Q2

REPORT INFORMATION
  Report Type: Spontaneous
  Country: US (occurrence: None)
  Receive Date: 20140617
  Receipt Date: 20140617
  Transmission Date: 20141212
  Serious: No
  Sender: FDA-Public Use
  Company Number: None

PATIENT
  Age: 32 Year
  Sex: Female
  Weight: 52.62 kg

DRUGS (1)
  1. VESTURA [Suspect]
     Indication: PREMENSTRUAL DYSPHORIC DISORDER
     Dosage: 1
     Route: 048
     Dates: start: 20140606, end: 20140608

REACTIONS (4)
  - Arthralgia [None]
  - Arthralgia [None]
  - Chest pain [None]
  - Myalgia [None]
